FAERS Safety Report 21318886 (Version 1)
Quarter: 2022Q3

REPORT INFORMATION
  Report Type: Spontaneous
  Country: US (occurrence: US)
  Receive Date: 20220911
  Receipt Date: 20220911
  Transmission Date: 20221027
  Serious: No
  Sender: FDA-Public Use
  Company Number: US-SA-SAC20220830000851

PATIENT
  Sex: Female

DRUGS (13)
  1. DUPIXENT [Suspect]
     Active Substance: DUPILUMAB
     Indication: Dermatitis atopic
     Dosage: 300 MG QOW
     Route: 058
  2. ALBUTEROL SULFATE [Concomitant]
     Active Substance: ALBUTEROL SULFATE
  3. OPZELURA [Concomitant]
     Active Substance: RUXOLITINIB PHOSPHATE
  4. AZELASTINE [Concomitant]
     Active Substance: AZELASTINE
  5. BUSPIRONE [Concomitant]
     Active Substance: BUSPIRONE HYDROCHLORIDE
  6. ESOMEPRAZOLE [Concomitant]
     Active Substance: ESOMEPRAZOLE
  7. GIMOTI [Concomitant]
     Active Substance: METOCLOPRAMIDE HYDROCHLORIDE
  8. LOSARTAN [Concomitant]
     Active Substance: LOSARTAN
  9. MODAFINIL [Concomitant]
     Active Substance: MODAFINIL
  10. OXYBUTYNIN [Concomitant]
     Active Substance: OXYBUTYNIN
  11. TOPIRAMATE [Concomitant]
     Active Substance: TOPIRAMATE
  12. ZOLPIDEM TARTRATE [Concomitant]
     Active Substance: ZOLPIDEM TARTRATE
  13. DEXTROAMPHETAMINE HYDROCHLORIDE [Concomitant]
     Active Substance: DEXTROAMPHETAMINE HYDROCHLORIDE

REACTIONS (11)
  - Swelling [Unknown]
  - Weight decreased [Unknown]
  - Ocular hyperaemia [Unknown]
  - Pruritus [Unknown]
  - Oropharyngeal pain [Unknown]
  - Insomnia [Unknown]
  - Gastritis [Unknown]
  - Toothache [Unknown]
  - Injection site erythema [Unknown]
  - Oral herpes [Unknown]
  - Arthralgia [Unknown]
